FAERS Safety Report 8362545-1 (Version None)
Quarter: 2012Q2

REPORT INFORMATION
  Report Type: 
  Country: None (occurrence: None)
  Receive Date: 20120514
  Receipt Date: 20120504
  Transmission Date: 20120825
  Serious: Yes (Hospitalization)
  Sender: FDA-Public Use
  Company Number: 2012SP024487

PATIENT
  Age: 45 Year
  Weight: 46 kg

DRUGS (12)
  1. BACLOFEN [Concomitant]
  2. MORPHINE SULFATE [Concomitant]
  3. SUCRALFATE [Concomitant]
  4. CYCLIZINE [Concomitant]
  5. LANSOPRAZOLE [Concomitant]
  6. DEXAMETHASONE [Suspect]
     Indication: PRODUCT USED FOR UNKNOWN INDICATION
     Dosage: 2 MG;QD;PO,6 MG;QD;PO 4 MG;QD;PO, 3 MG;QD;PO
     Route: 048
     Dates: start: 20120208, end: 20120214
  7. DEXAMETHASONE [Suspect]
     Indication: PRODUCT USED FOR UNKNOWN INDICATION
     Dosage: 2 MG;QD;PO,6 MG;QD;PO 4 MG;QD;PO, 3 MG;QD;PO
     Route: 048
     Dates: start: 20120326, end: 20120328
  8. DEXAMETHASONE [Suspect]
     Indication: PRODUCT USED FOR UNKNOWN INDICATION
     Dosage: 2 MG;QD;PO,6 MG;QD;PO 4 MG;QD;PO, 3 MG;QD;PO
     Route: 048
     Dates: start: 20120328
  9. DEXAMETHASONE [Suspect]
     Indication: PRODUCT USED FOR UNKNOWN INDICATION
     Dosage: 2 MG;QD;PO,6 MG;QD;PO 4 MG;QD;PO, 3 MG;QD;PO
     Route: 048
     Dates: start: 20120324
  10. DEXAMETHASONE [Suspect]
     Indication: PRODUCT USED FOR UNKNOWN INDICATION
     Dosage: 2 MG;QD;PO,6 MG;QD;PO 4 MG;QD;PO, 3 MG;QD;PO
     Route: 048
     Dates: start: 20120215, end: 20120220
  11. RIDAFOROLIMUS [Suspect]
     Indication: PRODUCT USED FOR UNKNOWN INDICATION
     Dosage: 30 MG;
  12. KEPPRA [Concomitant]

REACTIONS (11)
  - DRY SKIN [None]
  - ORAL HERPES [None]
  - ALANINE AMINOTRANSFERASE INCREASED [None]
  - FLUID INTAKE REDUCED [None]
  - BACTERIAL INFECTION [None]
  - HYDROCEPHALUS [None]
  - ASPARTATE AMINOTRANSFERASE INCREASED [None]
  - BLOOD SELENIUM INCREASED [None]
  - SKIN LESION [None]
  - PARTIAL SEIZURES [None]
  - FATIGUE [None]
